FAERS Safety Report 12637092 (Version 2)
Quarter: 2016Q3

REPORT INFORMATION
  Report Type: Other
  Country: FR (occurrence: FR)
  Receive Date: 20160809
  Receipt Date: 20160909
  Transmission Date: 20161109
  Serious: Yes (Other)
  Sender: FDA-Public Use
  Company Number: FR-APOTEX-2016AP010268

PATIENT
  Age: 2 Year
  Sex: Female

DRUGS (2)
  1. PAXIL [Suspect]
     Active Substance: PAROXETINE HYDROCHLORIDE
     Indication: ACCIDENTAL EXPOSURE TO PRODUCT
     Dosage: 10 MG, SINGLE
     Route: 048
     Dates: start: 20160305, end: 20160305
  2. SERESTA [Suspect]
     Active Substance: OXAZEPAM
     Indication: ACCIDENTAL EXPOSURE TO PRODUCT
     Dosage: 10 MG, SINGLE
     Route: 048
     Dates: start: 20160305, end: 20160305

REACTIONS (2)
  - Poisoning [Recovered/Resolved]
  - Agitation [Recovered/Resolved]

NARRATIVE: CASE EVENT DATE: 201603
